FAERS Safety Report 4651814-4 (Version None)
Quarter: 2005Q2

REPORT INFORMATION
  Report Type: 
  Country: None (occurrence: None)
  Receive Date: 20050504
  Receipt Date: 20050324
  Transmission Date: 20051028
  Serious: Yes (Other)
  Sender: FDA-Public Use
  Company Number: US-GLAXOSMITHKLINE-A0551142A

PATIENT
  Age: 43 Year
  Sex: Male
  Weight: 75.9 kg

DRUGS (5)
  1. SEREVENT [Suspect]
     Indication: ASTHMA
     Dosage: 1PUFF TWICE PER DAY
     Route: 055
  2. THEOPHYLLINE [Concomitant]
  3. TILADE [Concomitant]
  4. SINGULAIR [Concomitant]
  5. PULMICORT [Concomitant]

REACTIONS (1)
  - CONJUNCTIVAL CYST [None]
